FAERS Safety Report 16191821 (Version 1)
Quarter: 2019Q2

REPORT INFORMATION
  Report Type: Report from Study
  Country: CA (occurrence: CA)
  Receive Date: 20190412
  Receipt Date: 20190412
  Transmission Date: 20190711
  Serious: Yes (Death, Other)
  Sender: FDA-Public Use
  Company Number: PHHY2016CA009040

PATIENT
  Age: 50 Year
  Sex: Female

DRUGS (1)
  1. REVOLADE [Suspect]
     Active Substance: ELTROMBOPAG
     Indication: IMMUNE THROMBOCYTOPENIC PURPURA
     Dosage: 50 MG, UNK
     Route: 048
     Dates: start: 20150601

REACTIONS (9)
  - Myalgia [Unknown]
  - Myocardial infarction [Fatal]
  - White blood cell count decreased [Unknown]
  - Platelet count decreased [Unknown]
  - Pain [Unknown]
  - Rash [Unknown]
  - Oropharyngeal pain [Unknown]
  - Acne [Unknown]
  - Rosacea [Unknown]

NARRATIVE: CASE EVENT DATE: 20161101
